FAERS Safety Report 11745704 (Version 1)
Quarter: 2015Q4

REPORT INFORMATION
  Report Type: Spontaneous
  Country: GB (occurrence: GB)
  Receive Date: 20151117
  Receipt Date: 20151117
  Transmission Date: 20160304
  Serious: Yes (Other)
  Sender: FDA-Public Use
  Company Number: GB-ACTAVIS-2015-24422

PATIENT
  Age: 27 Year
  Sex: Male
  Weight: 108 kg

DRUGS (1)
  1. SALBUTAMOL (UNKNOWN) [Suspect]
     Active Substance: ALBUTEROL
     Indication: ASTHMA EXERCISE INDUCED
     Dosage: 100 ?G, UNKNOWN. (TOOK PRE AND POST EXERCISE)
     Route: 055

REACTIONS (6)
  - Cough [Not Recovered/Not Resolved]
  - Discomfort [Recovered/Resolved]
  - Product lot number issue [Unknown]
  - Pharyngitis [Recovered/Resolved]
  - Pyrexia [Recovered/Resolved]
  - Oropharyngeal pain [Recovered/Resolved]
